FAERS Safety Report 16426179 (Version 1)
Quarter: 2020Q3

REPORT INFORMATION
  Report Type: Spontaneous
  Country: IL (occurrence: IL)
  Receive Date: 20190613
  Receipt Date: 20190613
  Transmission Date: 20201104
  Serious: Yes (Other)
  Sender: FDA-Public Use
  Company Number: IND-IL-009507513-1906ISR002760

PATIENT
  Age: 42 Year
  Sex: Male

DRUGS (2)
  1. ETORICOXIB. [Suspect]
     Active Substance: ETORICOXIB
     Dosage: 90 MILLIGRAM
     Route: 048
  2. ASPIRIN. [Concomitant]
     Active Substance: ASPIRIN

REACTIONS (4)
  - Tongue ulceration [Unknown]
  - Immune-mediated adverse reaction [Unknown]
  - Oral mucosa erosion [Unknown]
  - Lip erosion [Unknown]
